FAERS Safety Report 5382019-X (Version None)
Quarter: 2007Q3

REPORT INFORMATION
  Report Type: 
  Country: None (occurrence: None)
  Receive Date: 20070705
  Receipt Date: 20070626
  Transmission Date: 20080115
  Serious: Yes (Other)
  Sender: FDA-Public Use
  Company Number: 163-20785-07041442

PATIENT
  Age: 55 Year
  Sex: Female
  Weight: 61.2356 kg

DRUGS (4)
  1. THALOMID [Suspect]
     Indication: AMYLOIDOSIS
     Dosage: 200MG-100MG, DAILY, ORAL ; 200 MG, 1 IN 1 D, ORAL
     Route: 048
     Dates: start: 20060323, end: 20060401
  2. THALOMID [Suspect]
     Indication: MULTIPLE MYELOMA
     Dosage: 200MG-100MG, DAILY, ORAL ; 200 MG, 1 IN 1 D, ORAL
     Route: 048
     Dates: start: 20060323, end: 20060401
  3. THALOMID [Suspect]
     Indication: AMYLOIDOSIS
     Dosage: 200MG-100MG, DAILY, ORAL ; 200 MG, 1 IN 1 D, ORAL
     Route: 048
     Dates: start: 20060201
  4. THALOMID [Suspect]
     Indication: MULTIPLE MYELOMA
     Dosage: 200MG-100MG, DAILY, ORAL ; 200 MG, 1 IN 1 D, ORAL
     Route: 048
     Dates: start: 20060201

REACTIONS (8)
  - ASTHENIA [None]
  - CONSTIPATION [None]
  - DIARRHOEA [None]
  - DISTURBANCE IN ATTENTION [None]
  - HALLUCINATION [None]
  - NAUSEA [None]
  - NEUROPATHY [None]
  - PNEUMONIA [None]
